FAERS Safety Report 6500457-6 (Version None)
Quarter: 2009Q4

REPORT INFORMATION
  Report Type: 
  Country: None (occurrence: None)
  Receive Date: 20091127
  Receipt Date: 20081031
  Transmission Date: 20100525
  Serious: Yes (Other)
  Sender: FDA-Public Use
  Company Number: WAES 0701USA00132

PATIENT
  Age: 45 Year
  Sex: Female

DRUGS (5)
  1. FOSAMAX [Suspect]
     Indication: PROPHYLAXIS
     Dosage: 70 MG/WKY/PO
     Route: 048
     Dates: start: 19990901, end: 20050701
  2. ARAVA [Concomitant]
  3. VOLTAREN [Concomitant]
  4. METHOTREXATE [Concomitant]
  5. PREDNISONE [Concomitant]

REACTIONS (17)
  - ANXIETY [None]
  - CORNEAL EROSION [None]
  - DENTAL CARIES [None]
  - DIARRHOEA [None]
  - EYE DISORDER [None]
  - IMPAIRED HEALING [None]
  - JAW DISORDER [None]
  - JAW FRACTURE [None]
  - KERATOCONJUNCTIVITIS SICCA [None]
  - MUSCLE ATROPHY [None]
  - ORAL DISORDER [None]
  - OSTEOMYELITIS [None]
  - OSTEONECROSIS [None]
  - PAIN IN JAW [None]
  - PERIODONTAL DISEASE [None]
  - STOMATITIS [None]
  - SWELLING [None]
